FAERS Safety Report 12482017 (Version 1)
Quarter: 2016Q2

REPORT INFORMATION
  Report Type: Spontaneous
  Country: US (occurrence: US)
  Receive Date: 20160620
  Receipt Date: 20160620
  Transmission Date: 20160815
  Serious: No
  Sender: FDA-Public Use
  Company Number: US-TRIS PHARMA, INC.-1054056

PATIENT
  Age: 93 Year
  Sex: Female
  Weight: 48.07 kg

DRUGS (3)
  1. ANTIHYPERTENSIVES [Concomitant]
     Active Substance: UNSPECIFIED INGREDIENT
  2. DEXTROMETHORPHAN POLISTIREX ER OS 6 MG/ML [Suspect]
     Active Substance: DEXTROMETHORPHAN HYDROBROMIDE
     Indication: COUGH
     Dates: start: 20150615, end: 201506
  3. VITAMINS NOS [Concomitant]
     Active Substance: VITAMINS

REACTIONS (1)
  - Drug ineffective [None]

NARRATIVE: CASE EVENT DATE: 20150615
